FAERS Safety Report 8616947 (Version 4)
Quarter: 2013Q4

REPORT INFORMATION
  Report Type: Report from Study
  Country: BO (occurrence: BO)
  Receive Date: 20120615
  Receipt Date: 20131101
  Transmission Date: 20140711
  Serious: Yes (Hospitalization, Other)
  Sender: FDA-Public Use
  Company Number: PHHY2012BO050913

PATIENT
  Age: 57 Year
  Sex: Male

DRUGS (3)
  1. GLIVEC [Suspect]
     Indication: CHRONIC MYELOID LEUKAEMIA
     Dosage: 400 UNK, UNK
  2. GLIVEC [Suspect]
     Dosage: 400 MG, DAILY
     Dates: start: 201102
  3. GLIVEC [Suspect]
     Dosage: 600 MG, UNK

REACTIONS (8)
  - Decreased immune responsiveness [Unknown]
  - Abasia [Unknown]
  - Pain in extremity [Unknown]
  - Gastrointestinal viral infection [Recovered/Resolved]
  - Leukaemia recurrent [Unknown]
  - Blood disorder [Unknown]
  - White blood cell count increased [Unknown]
  - Diarrhoea [Unknown]
